FAERS Safety Report 20824107 (Version 4)
Quarter: 2022Q3

REPORT INFORMATION
  Report Type: Spontaneous
  Country: US (occurrence: US)
  Receive Date: 20220513
  Receipt Date: 20220817
  Transmission Date: 20221027
  Serious: Yes (Hospitalization, Other)
  Sender: FDA-Public Use
  Company Number: US-UNITED THERAPEUTICS-UNT-2022-009238

PATIENT
  Sex: Male

DRUGS (6)
  1. TYVASO [Suspect]
     Active Substance: TREPROSTINIL
     Indication: Pulmonary arterial hypertension
     Dosage: UNK
     Dates: start: 20220307
  2. TYVASO [Suspect]
     Active Substance: TREPROSTINIL
     Dosage: 36 ?G, QID
     Dates: start: 2022, end: 2022
  3. TYVASO [Suspect]
     Active Substance: TREPROSTINIL
     Dosage: 42 ?G, QID
     Dates: start: 202207, end: 2022
  4. TYVASO [Suspect]
     Active Substance: TREPROSTINIL
     Dosage: 24 ?G, QID
     Dates: start: 2022
  5. IBUPROFEN [Interacting]
     Active Substance: IBUPROFEN
     Indication: Product used for unknown indication
     Dosage: UNK
     Route: 065
  6. ELIQUIS [Interacting]
     Active Substance: APIXABAN
     Indication: Product used for unknown indication
     Dosage: UNK
     Route: 065

REACTIONS (7)
  - Lower gastrointestinal haemorrhage [Recovering/Resolving]
  - Dizziness [Unknown]
  - Vision blurred [Unknown]
  - Hypoacusis [Unknown]
  - Abdominal pain lower [Unknown]
  - Drug interaction [Unknown]
  - Productive cough [Unknown]

NARRATIVE: CASE EVENT DATE: 20220101
